FAERS Safety Report 22523270 (Version 1)
Quarter: 2023Q2

REPORT INFORMATION
  Report Type: Report from Study
  Country: US (occurrence: US)
  Receive Date: 20230606
  Receipt Date: 20230606
  Transmission Date: 20230721
  Serious: Yes (Other)
  Sender: FDA-Public Use
  Company Number: US-ABBVIE-5188313

PATIENT
  Age: 34 Year
  Sex: Female

DRUGS (3)
  1. VENCLEXTA [Suspect]
     Active Substance: VENETOCLAX
     Indication: Acute myeloid leukaemia
     Route: 048
     Dates: start: 202305
  2. LEVAQUIN [Suspect]
     Active Substance: LEVOFLOXACIN
     Indication: Product used for unknown indication
     Route: 065
  3. COLLOIDAL SILVER [Suspect]
     Active Substance: SILVER
     Indication: Product used for unknown indication
     Route: 065

REACTIONS (11)
  - Platelet transfusion [Unknown]
  - Anxiety [Unknown]
  - Headache [Unknown]
  - Initial insomnia [Unknown]
  - Dermatitis contact [Unknown]
  - Joint range of motion decreased [Unknown]
  - Rash pustular [Unknown]
  - Emotional disorder [Unknown]
  - Pyrexia [Unknown]
  - Catheter site rash [Unknown]
  - Central venous catheterisation [Unknown]

NARRATIVE: CASE EVENT DATE: 20230501
